FAERS Safety Report 11495925 (Version 3)
Quarter: 2015Q4

REPORT INFORMATION
  Report Type: Spontaneous
  Country: TW (occurrence: TW)
  Receive Date: 20150911
  Receipt Date: 20151019
  Transmission Date: 20160304
  Serious: Yes (Death)
  Sender: FDA-Public Use
  Company Number: TW-ACTELION-A-CH2015-123635

PATIENT
  Age: 40 Year
  Sex: Female

DRUGS (1)
  1. TRACLEER [Suspect]
     Active Substance: BOSENTAN
     Indication: PULMONARY ARTERIAL HYPERTENSION
     Dosage: UNK
     Route: 048
     Dates: start: 2015, end: 20150901

REACTIONS (5)
  - Infection [Fatal]
  - Cardiac failure [Fatal]
  - Disease progression [Fatal]
  - Pulmonary arterial hypertension [Fatal]
  - Systemic lupus erythematosus [Fatal]
